FAERS Safety Report 7514562-9 (Version None)
Quarter: 2011Q2

REPORT INFORMATION
  Report Type: 
  Country: None (occurrence: None)
  Receive Date: 20110601
  Receipt Date: 20101223
  Transmission Date: 20111010
  Serious: No
  Sender: FDA-Public Use
  Company Number: US-BAYER-2010-008953

PATIENT
  Sex: Male

DRUGS (4)
  1. EVEROLIMUS [Concomitant]
     Dosage: UNK
     Dates: end: 20101207
  2. SUTENT [Concomitant]
     Dosage: UNK
     Dates: end: 20101119
  3. NEXAVAR [Suspect]
     Dosage: 2 PO AM AND PM
     Route: 048
     Dates: start: 20101213
  4. PERCOCET [Concomitant]
     Dosage: UNK

REACTIONS (1)
  - FATIGUE [None]
